FAERS Safety Report 7466451-6 (Version None)
Quarter: 2011Q2

REPORT INFORMATION
  Report Type: 
  Country: None (occurrence: None)
  Receive Date: 20110509
  Receipt Date: 20110506
  Transmission Date: 20111010
  Serious: Yes (Other)
  Sender: FDA-Public Use
  Company Number: US-PFIZER INC-2011098270

PATIENT
  Sex: Male
  Weight: 68 kg

DRUGS (4)
  1. CHANTIX [Suspect]
     Dosage: 0.5 MG, 2X/DAY
     Dates: start: 20110401, end: 20110101
  2. CHANTIX [Suspect]
     Dosage: 1 MG, 2X/DAY
     Dates: start: 20110101
  3. MONTELUKAST [Concomitant]
     Indication: ASTHMA
     Dosage: UNK
  4. CHANTIX [Suspect]
     Indication: SMOKING CESSATION THERAPY
     Dosage: 0.5 MG, 1X/DAY
     Route: 048
     Dates: start: 20110415, end: 20110401

REACTIONS (3)
  - INSOMNIA [None]
  - ANGER [None]
  - HALLUCINATION [None]
